FAERS Safety Report 8292289 (Version 3)
Quarter: 2014Q2

REPORT INFORMATION
  Report Type: Spontaneous
  Country: US (occurrence: US)
  Receive Date: 20111215
  Receipt Date: 20140409
  Transmission Date: 20141212
  Serious: Yes (Other)
  Sender: FDA-Public Use
  Company Number: US-BAYER-2011-116852

PATIENT
  Age: 25 Year
  Sex: Female
  Weight: 70.3 kg

DRUGS (13)
  1. OCELLA [Suspect]
     Dosage: UNK
     Dates: start: 2002, end: 2007
  2. YAZ [Suspect]
     Dosage: UNK
     Dates: start: 2002, end: 2007
  3. YASMIN [Suspect]
     Dosage: UNK
     Dates: start: 2002, end: 2007
  4. PREDNISONE [Concomitant]
     Indication: RHEUMATOID ARTHRITIS
     Dosage: 10 MG, UNK
     Route: 048
     Dates: start: 20091016
  5. PREDNISONE [Concomitant]
     Indication: RHEUMATOID ARTHRITIS
     Dosage: 5 MG, UNK
     Route: 048
     Dates: start: 20091016, end: 20091210
  6. PREDNISONE [Concomitant]
     Indication: RHEUMATOID ARTHRITIS
     Dosage: 1 MG, UNK
     Route: 048
     Dates: start: 20091228
  7. PREDNISONE [Concomitant]
     Indication: RHEUMATOID ARTHRITIS
     Dosage: UNK
     Dates: start: 2007
  8. ISONIAZID [Concomitant]
     Dosage: 300 MG, UNK
     Route: 048
     Dates: start: 20090930, end: 20091210
  9. METHOTREXATE SODIUM [Concomitant]
     Dosage: 2.5 MG, UNK
     Route: 048
     Dates: start: 20090930, end: 20091228
  10. FOLIC ACID [Concomitant]
     Dosage: 1 MG, UNK
     Route: 048
     Dates: start: 20090930, end: 20091210
  11. XOPENEX [Concomitant]
     Dosage: 45 MCG/ACT
     Route: 045
     Dates: start: 20100111
  12. MICROGESTIN FE [Concomitant]
     Dosage: 1.5-30MG-MCG UNK
     Route: 048
     Dates: start: 20091223
  13. VITA-B6 [Concomitant]
     Dosage: UNK
     Dates: start: 20091113

REACTIONS (3)
  - Gallbladder non-functioning [None]
  - Cholecystitis chronic [None]
  - Pain [None]
